FAERS Safety Report 8455670-8 (Version None)
Quarter: 2012Q2

REPORT INFORMATION
  Report Type: 
  Country: None (occurrence: None)
  Receive Date: 20120621
  Receipt Date: 20120611
  Transmission Date: 20120825
  Serious: Yes (Hospitalization)
  Sender: FDA-Public Use
  Company Number: US-JNJFOC-20120605803

PATIENT
  Sex: Male
  Weight: 51.1 kg

DRUGS (8)
  1. MESALAMINE [Concomitant]
  2. CALCIUM CARBONATE [Concomitant]
  3. PENTASA [Concomitant]
  4. REMICADE [Suspect]
     Route: 042
     Dates: start: 20120430
  5. REMICADE [Suspect]
     Route: 042
     Dates: start: 20120531
  6. REMICADE [Suspect]
     Indication: CROHN'S DISEASE
     Route: 042
     Dates: start: 20120418
  7. FERROUS SULFATE TAB [Concomitant]
  8. VITAMIN D [Concomitant]

REACTIONS (1)
  - PERIRECTAL ABSCESS [None]
